FAERS Safety Report 19752504 (Version 2)
Quarter: 2021Q3

REPORT INFORMATION
  Report Type: Report from Study
  Country: MX (occurrence: MX)
  Receive Date: 20210827
  Receipt Date: 20210904
  Transmission Date: 20211014
  Serious: Yes (Other)
  Sender: FDA-Public Use
  Company Number: MX-UCBSA-2021040100

PATIENT
  Age: 37 Year
  Sex: Female
  Weight: 93 kg

DRUGS (1)
  1. CERTOLIZUMAB PEGOL [Suspect]
     Active Substance: CERTOLIZUMAB PEGOL
     Indication: PRODUCT USED FOR UNKNOWN INDICATION
     Dosage: 400 MILLIGRAM, EV 30 DAYS
     Dates: start: 2015, end: 2018

REACTIONS (1)
  - Hepatic pain [Recovered/Resolved]

NARRATIVE: CASE EVENT DATE: 2018
